FAERS Safety Report 7748301-3 (Version None)
Quarter: 2011Q3

REPORT INFORMATION
  Report Type: 
  Country: None (occurrence: None)
  Receive Date: 20110913
  Receipt Date: 20110902
  Transmission Date: 20111222
  Serious: Yes (Other)
  Sender: FDA-Public Use
  Company Number: PHEH2011US01255

PATIENT
  Sex: Male

DRUGS (4)
  1. ZOMETA [Suspect]
     Indication: OSTEOPOROSIS
     Dosage: 30 MG, 1 PER MONTH
     Route: 042
  2. PROVENGE [Concomitant]
     Indication: PROSTATE CANCER
     Dosage: 2 WEEKS BETEEN EACN TREATMENT
     Dates: start: 20110401, end: 20110501
  3. NAPROXEN (ALEVE) [Concomitant]
     Dosage: UNK UKN, PRN
  4. AREDIA [Suspect]
     Indication: PROSTATE CANCER
     Dosage: 90 MG, QMO

REACTIONS (2)
  - METASTASES TO BONE [None]
  - PROSTATE CANCER METASTATIC [None]
